FAERS Safety Report 11777943 (Version 2)
Quarter: 2015Q4

REPORT INFORMATION
  Report Type: Report from Study
  Country: US (occurrence: US)
  Receive Date: 20151125
  Receipt Date: 20151204
  Transmission Date: 20160304
  Serious: Yes (Hospitalization, Other)
  Sender: FDA-Public Use
  Company Number: PHHO2015US019371

PATIENT
  Age: 8 Year
  Sex: Male
  Weight: 21.1 kg

DRUGS (4)
  1. M_CTL019_FLUDARABINE [Suspect]
     Active Substance: FLUDARABINE PHOSPHATE
     Indication: CHEMOTHERAPY
     Dosage: 25 MG, QD
     Route: 042
     Dates: start: 20151105, end: 20151108
  2. M_CTL019_CYCLOPHOSPHAMIDE [Suspect]
     Active Substance: CYCLOPHOSPHAMIDE
     Indication: CHEMOTHERAPY
     Dosage: 420 MG, QD
     Route: 042
     Dates: start: 20151105, end: 20151106
  3. ALLOPURINOL. [Concomitant]
     Active Substance: ALLOPURINOL
     Indication: TUMOUR LYSIS SYNDROME
     Dosage: 100 MG, TID
     Route: 048
     Dates: start: 20151108
  4. CTL019 [Suspect]
     Active Substance: TISAGENLECLEUCEL-T
     Indication: ACUTE LYMPHOCYTIC LEUKAEMIA
     Dosage: UNK
     Route: 042
     Dates: start: 20151112, end: 20151112

REACTIONS (8)
  - Peripheral coldness [None]
  - Febrile neutropenia [Recovering/Resolving]
  - Decreased appetite [None]
  - Hypotension [None]
  - Staphylococcal infection [Recovering/Resolving]
  - Staphylococcal bacteraemia [None]
  - Cytokine release syndrome [Recovering/Resolving]
  - Tachycardia [None]

NARRATIVE: CASE EVENT DATE: 20151113
